FAERS Safety Report 13187869 (Version 2)
Quarter: 2017Q1

REPORT INFORMATION
  Report Type: Spontaneous
  Country: MA (occurrence: MA)
  Receive Date: 20170206
  Receipt Date: 20170215
  Transmission Date: 20170428
  Serious: Yes (Death, Other)
  Sender: FDA-Public Use
  Company Number: MA-SUN PHARMACEUTICAL INDUSTRIES LTD-2017RR-132589

PATIENT
  Age: 43 Year
  Sex: Female

DRUGS (6)
  1. PACLITAXEL. [Suspect]
     Active Substance: PACLITAXEL
     Indication: NEOPLASM PROGRESSION
     Dosage: 80 MG/M2, 1 COURSE
     Route: 065
  2. CARBOPLATIN. [Suspect]
     Active Substance: CARBOPLATIN
     Indication: SQUAMOUS CELL CARCINOMA
     Dosage: 5 MG/ML, PER MINUTE , AS 1 HOUR ON DAY 1
     Route: 042
  3. 5-FLUOROURACIL [Suspect]
     Active Substance: FLUOROURACIL
     Dosage: 2400 MG/M2, FO2 2 DAYS EVERY 3 WEEKS
     Route: 041
  4. PACLITAXEL. [Suspect]
     Active Substance: PACLITAXEL
     Indication: METASTASIS
  5. 5-FLUOROURACIL [Suspect]
     Active Substance: FLUOROURACIL
     Indication: SQUAMOUS CELL CARCINOMA
     Dosage: 400 MG/M2, DAILY, FOR 3 DAYS EVERY 3 WEEKS
     Route: 040
  6. CISPLATIN. [Suspect]
     Active Substance: CISPLATIN
     Indication: SQUAMOUS CELL CARCINOMA
     Dosage: 75 M2, 1 HOUR ON DAY 1
     Route: 042

REACTIONS (5)
  - Metastasis [Fatal]
  - Febrile neutropenia [Recovering/Resolving]
  - Neoplasm progression [Fatal]
  - Vomiting [Recovering/Resolving]
  - Performance status decreased [Fatal]
